FAERS Safety Report 5897254-1 (Version None)
Quarter: 2008Q3

REPORT INFORMATION
  Report Type: 
  Country: None (occurrence: None)
  Receive Date: 20080923
  Receipt Date: 20080910
  Transmission Date: 20090109
  Serious: Yes (Hospitalization)
  Sender: FDA-Public Use
  Company Number: 2008SP018786

PATIENT
  Age: 93 Year
  Sex: Male

DRUGS (12)
  1. LORATADINE [Suspect]
     Indication: RHINITIS ALLERGIC
     Dosage: PO
     Route: 048
     Dates: end: 20080602
  2. XATRAL (ALFUZOSIN) [Suspect]
     Indication: BENIGN PROSTATIC HYPERPLASIA
     Dosage: 10 MG; PO
     Route: 048
     Dates: end: 20080703
  3. PERMIXON (SERENOA REPENS) [Suspect]
     Indication: BENIGN PROSTATIC HYPERPLASIA
     Dosage: 160 MG; PO
     Route: 048
     Dates: end: 20080702
  4. MODURETIC 5-50 [Suspect]
     Indication: HYPERTENSION
     Dosage: PO
     Route: 048
     Dates: end: 20080702
  5. OMEPRAZOLE [Suspect]
     Dosage: PO
     Route: 048
     Dates: end: 20080703
  6. NOCTRAN (NOCTRAN 10) [Suspect]
     Indication: INSOMNIA
     Dosage: PO
     Route: 048
     Dates: end: 20080702
  7. ZOLPIDEM TARTRATE [Suspect]
     Indication: INSOMNIA
     Dosage: PO
     Route: 048
     Dates: end: 20080702
  8. TANAKAN (GINKGO BILOBA EXTRACT) [Suspect]
     Dosage: PO
     Route: 048
     Dates: end: 20080702
  9. VASTAREL (TRIMETAZIDINE HYDROCHLORIDE) [Suspect]
     Dosage: PO
     Route: 048
     Dates: end: 20080702
  10. CEFIXIME CHEWABLE [Suspect]
     Indication: BRONCHITIS
     Dosage: 200 MG; PO
     Route: 048
     Dates: start: 20080630, end: 20080702
  11. OROCAL VITAMIN D3 (NO PREF. NAME) [Suspect]
     Dosage: 500 MG; PO
     Route: 048
     Dates: end: 20080702
  12. DOLIPRANE [Concomitant]

REACTIONS (7)
  - BRONCHIAL DISORDER [None]
  - CHOLESTASIS [None]
  - FALL [None]
  - GAIT DISTURBANCE [None]
  - GENERAL PHYSICAL HEALTH DETERIORATION [None]
  - PERITONEAL EFFUSION [None]
  - RENAL FAILURE [None]
